FAERS Safety Report 10206996 (Version 1)
Quarter: 2014Q2

REPORT INFORMATION
  Report Type: Report from Study
  Country: PL (occurrence: PL)
  Receive Date: 20140530
  Receipt Date: 20140530
  Transmission Date: 20141212
  Serious: Yes (Death)
  Sender: FDA-Public Use
  Company Number: PL-PFIZER INC-2014144822

PATIENT
  Age: 15 Year
  Sex: Female

DRUGS (6)
  1. DOXORUBICIN HCL [Suspect]
     Indication: EWING^S SARCOMA
     Dosage: 60 MG/M2, CYCLIC
  2. ETOPOSIDE [Suspect]
     Indication: EWING^S SARCOMA
     Dosage: 450 MG/M2, CYCLIC
  3. VINCRISTINE [Suspect]
     Indication: EWING^S SARCOMA
     Dosage: 1.5 MG/M2, CYCLIC
  4. MELPHALAN [Suspect]
     Indication: EWING^S SARCOMA
     Dosage: 140 MG/M2, CYCLIC
  5. IFOSFAMIDE [Suspect]
     Indication: EWING^S SARCOMA
     Dosage: 9000 MG/M2, CYCLIC
  6. BUSULFAN [Suspect]
     Indication: EWING^S SARCOMA
     Dosage: 16 MG/KG, CYCLIC

REACTIONS (2)
  - Venoocclusive liver disease [Fatal]
  - Multi-organ failure [Fatal]
